FAERS Safety Report 25526540 (Version 2)
Quarter: 2025Q3

REPORT INFORMATION
  Report Type: Spontaneous
  Country: GB (occurrence: GB)
  Receive Date: 20250707
  Receipt Date: 20250716
  Transmission Date: 20251020
  Serious: Yes (Other)
  Sender: VERITY PHARMACEUTICALS INC.
  Company Number: GB-VER-202500007

PATIENT
  Sex: Female

DRUGS (1)
  1. TRIPTORELIN PAMOATE [Suspect]
     Active Substance: TRIPTORELIN PAMOATE
     Indication: Uterine leiomyoma
     Route: 065

REACTIONS (2)
  - Medication error [Unknown]
  - Osteopenia [Not Recovered/Not Resolved]
